FAERS Safety Report 5358042-8 (Version None)
Quarter: 2007Q2

REPORT INFORMATION
  Report Type: 
  Country: None (occurrence: None)
  Receive Date: 20070530
  Receipt Date: 20061116
  Transmission Date: 20071010
  Serious: Yes (Hospitalization)
  Sender: FDA-Public Use
  Company Number: US200611003385

PATIENT
  Sex: Female

DRUGS (4)
  1. ZYPREXA [Suspect]
  2. CYMBALTA [Suspect]
  3. OPIOIDS [Concomitant]
  4. LAMICTAL [Concomitant]

REACTIONS (1)
  - OVERDOSE [None]
